FAERS Safety Report 9378884 (Version 2)
Quarter: 2013Q3

REPORT INFORMATION
  Report Type: Spontaneous
  Country: US (occurrence: US)
  Receive Date: 20130702
  Receipt Date: 20130819
  Transmission Date: 20140515
  Serious: No
  Sender: FDA-Public Use
  Company Number: US-PFIZER INC-2013191985

PATIENT
  Sex: Female

DRUGS (4)
  1. METHOTREXATE SODIUM [Suspect]
     Indication: PSORIASIS
     Dosage: UNK
     Dates: start: 2011
  2. NYSTATIN [Concomitant]
     Indication: VULVOVAGINAL DISCOMFORT
     Dosage: UNK
     Dates: start: 2009
  3. TRIAMCINOLONE ACETONIDE [Concomitant]
     Indication: VULVOVAGINAL DISCOMFORT
     Dosage: UNK
     Dates: start: 2009
  4. INSULIN [Concomitant]
     Dosage: UNK

REACTIONS (4)
  - Incorrect dose administered [Unknown]
  - Diarrhoea [Unknown]
  - Movement disorder [Unknown]
  - Bradyphrenia [Unknown]
